FAERS Safety Report 13593286 (Version 1)
Quarter: 2017Q2

REPORT INFORMATION
  Report Type: Spontaneous
  Country: US (occurrence: US)
  Receive Date: 20170530
  Receipt Date: 20170530
  Transmission Date: 20170830
  Serious: No
  Sender: FDA-Public Use
  Company Number: US-TEVA-766495USA

PATIENT
  Age: 62 Year
  Sex: Female
  Weight: 72.19 kg

DRUGS (4)
  1. QNASL [Suspect]
     Active Substance: BECLOMETHASONE DIPROPIONATE
     Indication: UPPER-AIRWAY COUGH SYNDROME
     Dosage: 1 DOSAGE FORMS DAILY;
     Route: 045
     Dates: start: 20131216
  2. QNASL [Suspect]
     Active Substance: BECLOMETHASONE DIPROPIONATE
     Indication: SINUS DISORDER
  3. MULTIVITAMIN [Concomitant]
     Active Substance: VITAMINS
  4. VITAMIN D3 [Concomitant]
     Active Substance: CHOLECALCIFEROL

REACTIONS (4)
  - Rhinalgia [Unknown]
  - Nasal discomfort [Unknown]
  - Anxiety [Unknown]
  - Anosmia [Not Recovered/Not Resolved]

NARRATIVE: CASE EVENT DATE: 20140208
